FAERS Safety Report 23353671 (Version 1)
Quarter: 2024Q1

REPORT INFORMATION
  Report Type: Spontaneous
  Country: US (occurrence: US)
  Receive Date: 20240101
  Receipt Date: 20240101
  Transmission Date: 20240410
  Serious: Yes (Other)
  Sender: FDA-Public Use
  Company Number: US-PURDUE PHARMA-USA-2023-0306800

PATIENT
  Age: 70 Year
  Sex: Female
  Weight: 145 kg

DRUGS (1)
  1. OXYCONTIN [Suspect]
     Active Substance: OXYCODONE HYDROCHLORIDE
     Indication: Restless legs syndrome
     Dosage: 10 MILLIGRAM, DAILY
     Route: 048
     Dates: start: 20220101, end: 20231227

REACTIONS (2)
  - Drug withdrawal syndrome [Unknown]
  - Product availability issue [Unknown]

NARRATIVE: CASE EVENT DATE: 20231226
